FAERS Safety Report 4303625-7 (Version None)
Quarter: 2004Q1

REPORT INFORMATION
  Report Type: 
  Country: None (occurrence: None)
  Receive Date: 20040225
  Receipt Date: 20031124
  Transmission Date: 20041129
  Serious: Yes (Other)
  Sender: FDA-Public Use
  Company Number: PHNU2003DE04168

PATIENT
  Age: 52 Year
  Sex: Female
  Weight: 65 kg

DRUGS (3)
  1. DESFERAL [Suspect]
     Indication: HAEMOSIDEROSIS
     Dosage: 8 TO 10 G WEEKLY
     Dates: start: 20000801
  2. DANAZOL [Concomitant]
     Route: 048
  3. SANDIMMUNE [Concomitant]
     Route: 065
     Dates: start: 20001001, end: 20010201

REACTIONS (3)
  - CYSTITIS [None]
  - POLYNEUROPATHY [None]
  - PYELONEPHRITIS [None]
